FAERS Safety Report 4888051-4 (Version None)
Quarter: 2006Q1

REPORT INFORMATION
  Report Type: 
  Country: None (occurrence: None)
  Receive Date: 20060123
  Receipt Date: 20051005
  Transmission Date: 20060701
  Serious: Yes (Disabling)
  Sender: FDA-Public Use
  Company Number: US-MERCK-0510USA04647

PATIENT
  Age: 42 Year
  Sex: Male
  Weight: 91 kg

DRUGS (1)
  1. VIOXX [Suspect]
     Indication: HERNIA
     Route: 048
     Dates: end: 20040101

REACTIONS (4)
  - CARDIOMYOPATHY [None]
  - JOINT INJURY [None]
  - MYOCARDIAL INFARCTION [None]
  - THROMBOSIS [None]
